FAERS Safety Report 6692178-4 (Version None)
Quarter: 2010Q2

REPORT INFORMATION
  Report Type: 
  Country: None (occurrence: None)
  Receive Date: 20100422
  Receipt Date: 20090602
  Transmission Date: 20101027
  Serious: Yes (Other)
  Sender: FDA-Public Use
  Company Number: US-ASTRAZENECA-2009UW14084

PATIENT
  Age: 83 Year
  Sex: Female

DRUGS (5)
  1. TOPROL-XL [Suspect]
     Route: 048
     Dates: end: 20090201
  2. TOPROL-XL [Suspect]
     Route: 048
     Dates: start: 20090201
  3. CRESTOR [Suspect]
     Route: 048
     Dates: start: 20090301
  4. BENICAR [Concomitant]
  5. HYDROCHLOROTHIAZIDE [Concomitant]

REACTIONS (2)
  - ALOPECIA [None]
  - MYOCARDIAL INFARCTION [None]
